FAERS Safety Report 13226222 (Version 2)
Quarter: 2017Q1

REPORT INFORMATION
  Report Type: Spontaneous
  Country: US (occurrence: US)
  Receive Date: 20170213
  Receipt Date: 20170221
  Transmission Date: 20170428
  Serious: No
  Sender: FDA-Public Use
  Company Number: US-PFIZER INC-2017052466

PATIENT
  Age: 64 Year
  Sex: Female

DRUGS (1)
  1. IBRANCE [Suspect]
     Active Substance: PALBOCICLIB
     Dosage: 125 MG, CYCLIC; (DAILY FOR 21 DAYS ON AND 7 DAYS OFF)
     Route: 048

REACTIONS (4)
  - Hair disorder [Unknown]
  - Fatigue [Unknown]
  - Oropharyngeal plaque [Unknown]
  - Alopecia [Unknown]
